FAERS Safety Report 7894871-4 (Version None)
Quarter: 2011Q4

REPORT INFORMATION
  Report Type: 
  Country: None (occurrence: None)
  Receive Date: 20111106
  Receipt Date: 20110819
  Transmission Date: 20120403
  Serious: No
  Sender: FDA-Public Use
  Company Number: US-AMGEN-USASP2011042504

PATIENT
  Age: 50 Year
  Sex: Female

DRUGS (4)
  1. ENBREL [Suspect]
     Indication: PSORIATIC ARTHROPATHY
     Dosage: 50 MG, 2 TIMES/WK
     Dates: start: 20110606
  2. CLOBETASOL [Concomitant]
     Dosage: UNK
  3. ENBREL [Suspect]
     Indication: PSORIASIS
  4. DERMATOLOGICALS [Concomitant]
     Dosage: UNK

REACTIONS (4)
  - DRUG EFFECT DECREASED [None]
  - CONSTIPATION [None]
  - LACERATION [None]
  - GENITAL INFECTION [None]
